FAERS Safety Report 11789045 (Version 1)
Quarter: 2015Q4

REPORT INFORMATION
  Report Type: Spontaneous
  Country: JP (occurrence: JP)
  Receive Date: 20151201
  Receipt Date: 20151201
  Transmission Date: 20160305
  Serious: Yes (Death, Other)
  Sender: FDA-Public Use
  Company Number: JP-ROCHE-1669651

PATIENT
  Age: 74 Year
  Sex: Male
  Weight: 67 kg

DRUGS (10)
  1. FENTOS (JAPAN) [Concomitant]
     Indication: SMALL INTESTINE CARCINOMA
     Route: 062
     Dates: start: 20150520
  2. OXINORM (JAPAN) [Concomitant]
  3. GASTER [Concomitant]
     Active Substance: FAMOTIDINE
     Indication: PROPHYLAXIS
     Route: 042
     Dates: start: 20150528, end: 20150528
  4. DEXART [Concomitant]
     Active Substance: DEXAMETHASONE SODIUM PHOSPHATE
     Indication: PROPHYLAXIS
     Route: 042
     Dates: start: 20150528, end: 20150528
  5. XELODA [Suspect]
     Active Substance: CAPECITABINE
     Indication: SMALL INTESTINE CARCINOMA
     Dosage: EVERYDAY MEDICATION (NO DISCONTINUATION)
     Route: 048
     Dates: start: 20150528, end: 20150601
  6. ELPLAT [Suspect]
     Active Substance: OXALIPLATIN
     Indication: SMALL INTESTINE CARCINOMA
     Route: 041
     Dates: start: 20150528, end: 20150528
  7. ALOXI [Concomitant]
     Active Substance: PALONOSETRON HYDROCHLORIDE
     Indication: PROPHYLAXIS
     Route: 042
     Dates: start: 20150528, end: 20150528
  8. SELARA [Concomitant]
     Active Substance: EPLERENONE
     Indication: OEDEMA
     Route: 048
     Dates: start: 20150526, end: 20150602
  9. LANTUS [Concomitant]
     Active Substance: INSULIN GLARGINE
     Route: 058
  10. BROTIZOLAM [Concomitant]
     Active Substance: BROTIZOLAM
     Route: 048

REACTIONS (2)
  - Renal disorder [Not Recovered/Not Resolved]
  - Small intestine carcinoma [Fatal]

NARRATIVE: CASE EVENT DATE: 20150601
